FAERS Safety Report 8012035-0 (Version None)
Quarter: 2011Q4

REPORT INFORMATION
  Report Type: 
  Country: None (occurrence: None)
  Receive Date: 20111228
  Receipt Date: 20111219
  Transmission Date: 20120403
  Serious: Yes (Other)
  Sender: FDA-Public Use
  Company Number: JP-GLAXOSMITHKLINE-B0770893A

PATIENT
  Age: 66 Year
  Sex: Male

DRUGS (1)
  1. LAMICTAL [Suspect]
     Indication: BIPOLAR DISORDER
     Dosage: 400MG PER DAY
     Route: 048
     Dates: start: 20111129, end: 20111216

REACTIONS (2)
  - OCULAR HYPERAEMIA [None]
  - INTENTIONAL OVERDOSE [None]
